FAERS Safety Report 7552495-2 (Version None)
Quarter: 2011Q2

REPORT INFORMATION
  Report Type: 
  Country: None (occurrence: None)
  Receive Date: 20110616
  Receipt Date: 20110609
  Transmission Date: 20111010
  Serious: Yes (Other)
  Sender: FDA-Public Use
  Company Number: US-PFIZER INC-2011127216

PATIENT
  Sex: Female
  Weight: 49.887 kg

DRUGS (1)
  1. PREPARATION H HYDROCORTISONE [Suspect]
     Indication: HAEMORRHOIDS
     Dosage: UNK, ONCE A MONTH
     Dates: start: 20110101

REACTIONS (1)
  - RECTAL HAEMORRHAGE [None]
